FAERS Safety Report 16873301 (Version 5)
Quarter: 2020Q1

REPORT INFORMATION
  Report Type: Spontaneous
  Country: US (occurrence: US)
  Receive Date: 20191001
  Receipt Date: 20200127
  Transmission Date: 20200409
  Serious: No
  Sender: FDA-Public Use
  Company Number: US-PFIZER INC-2019419263

PATIENT
  Age: 72 Year
  Sex: Female

DRUGS (1)
  1. XELJANZ XR [Suspect]
     Active Substance: TOFACITINIB CITRATE
     Dosage: 11 MG, UNK

REACTIONS (6)
  - Joint range of motion decreased [Unknown]
  - Gait disturbance [Unknown]
  - Pain in extremity [Unknown]
  - Malaise [Unknown]
  - Pain [Unknown]
  - Impaired work ability [Unknown]
